FAERS Safety Report 5854708-1 (Version None)
Quarter: 2008Q3

REPORT INFORMATION
  Report Type: 
  Country: None (occurrence: None)
  Receive Date: 20080822
  Receipt Date: 20080812
  Transmission Date: 20090109
  Serious: Yes (Other)
  Sender: FDA-Public Use
  Company Number: DE-PFIZER INC-2008067752

PATIENT
  Sex: Female

DRUGS (1)
  1. LYRICA [Suspect]
     Route: 048

REACTIONS (5)
  - DIARRHOEA [None]
  - EPILEPSY [None]
  - HAEMATOMA [None]
  - SPEECH DISORDER [None]
  - VOMITING [None]
